FAERS Safety Report 20290889 (Version 2)
Quarter: 2022Q1

REPORT INFORMATION
  Report Type: Spontaneous
  Country: TW (occurrence: TW)
  Receive Date: 20220104
  Receipt Date: 20220110
  Transmission Date: 20220424
  Serious: Yes (Hospitalization)
  Sender: FDA-Public Use
  Company Number: TW-ELI_LILLY_AND_COMPANY-TW202112012357

PATIENT
  Age: 42 Year
  Sex: Male

DRUGS (5)
  1. TALTZ [Suspect]
     Active Substance: IXEKIZUMAB
     Indication: Psoriasis
     Dosage: 160 MG, UNKNOWN LOADING DOSE
     Route: 065
     Dates: start: 20211130
  2. TALTZ [Suspect]
     Active Substance: IXEKIZUMAB
     Dosage: 80 MG, OTHER EVERY TWO WEEK
     Route: 065
     Dates: start: 20211221
  3. SENNOSIDES [Concomitant]
     Active Substance: SENNOSIDES
     Indication: Constipation
     Dosage: 1 DOSAGE FORM, DAILY
     Route: 048
     Dates: start: 20211225, end: 20211225
  4. SENNOSIDES [Concomitant]
     Active Substance: SENNOSIDES
     Dosage: 2 DOSAGE FORM
     Route: 048
     Dates: start: 20211225, end: 20211227
  5. SODIUM CHLORIDE [Concomitant]
     Active Substance: SODIUM CHLORIDE
     Indication: Product used for unknown indication
     Dosage: 1 BOT.
     Route: 042
     Dates: start: 20211225, end: 20211227

REACTIONS (3)
  - Headache [Recovered/Resolved]
  - Diarrhoea [Unknown]
  - Drug hypersensitivity [Not Recovered/Not Resolved]

NARRATIVE: CASE EVENT DATE: 20211224
